FAERS Safety Report 21902065 (Version 2)
Quarter: 2023Q2

REPORT INFORMATION
  Report Type: Spontaneous
  Country: US (occurrence: US)
  Receive Date: 20230124
  Receipt Date: 20230524
  Transmission Date: 20230722
  Serious: No
  Sender: FDA-Public Use
  Company Number: US-SA-SAC20230123000487

PATIENT
  Age: 39 Year
  Sex: Female
  Weight: 58.957 kg

DRUGS (2)
  1. FABRAZYME [Suspect]
     Active Substance: AGALSIDASE BETA
     Indication: Fabry^s disease
     Dosage: 25 MG, QOW
     Route: 065
     Dates: start: 20160317
  2. FABRAZYME [Suspect]
     Active Substance: AGALSIDASE BETA
     Dosage: 35 MG, QOW
     Route: 065
     Dates: start: 202202

REACTIONS (3)
  - Weight increased [Unknown]
  - Weight decreased [Unknown]
  - Exposure during pregnancy [Unknown]
